FAERS Safety Report 25489907 (Version 1)
Quarter: 2025Q2

REPORT INFORMATION
  Report Type: Spontaneous
  Country: US (occurrence: US)
  Receive Date: 20250627
  Receipt Date: 20250627
  Transmission Date: 20250716
  Serious: No
  Sender: MERCK SHARP & DOHME LLC
  Company Number: US-009507513-2298471

PATIENT
  Sex: Female
  Weight: 54.885 kg

DRUGS (17)
  1. SOTATERCEPT [Suspect]
     Active Substance: SOTATERCEPT
  2. SOTATERCEPT [Suspect]
     Active Substance: SOTATERCEPT
  3. SOTATERCEPT [Suspect]
     Active Substance: SOTATERCEPT
  4. SOTATERCEPT [Suspect]
     Active Substance: SOTATERCEPT
  5. ORENITRAM [Suspect]
     Active Substance: TREPROSTINIL
     Indication: Pulmonary arterial hypertension
     Route: 048
     Dates: start: 20250318, end: 202505
  6. LIDOCAINE [Concomitant]
     Active Substance: LIDOCAINE
  7. FUROSEMIDE [Concomitant]
     Active Substance: FUROSEMIDE
  8. BACTRIM DS [Concomitant]
     Active Substance: SULFAMETHOXAZOLE\TRIMETHOPRIM
  9. ROSUVASTATIN CALCIUM [Concomitant]
     Active Substance: ROSUVASTATIN CALCIUM
  10. PROTONIX [Concomitant]
     Active Substance: PANTOPRAZOLE SODIUM
  11. TADALAFIL [Concomitant]
     Active Substance: TADALAFIL
  12. ELIQUIS [Concomitant]
     Active Substance: APIXABAN
  13. LISINOPRIL [Concomitant]
     Active Substance: LISINOPRIL
  14. OPSUMIT [Concomitant]
     Active Substance: MACITENTAN
  15. BUMETANIDE [Concomitant]
     Active Substance: BUMETANIDE
  16. PREDNISONE [Concomitant]
     Active Substance: PREDNISONE
  17. CELLCEPT [Concomitant]
     Active Substance: MYCOPHENOLATE MOFETIL

REACTIONS (2)
  - Skin discolouration [Unknown]
  - Nasopharyngitis [Unknown]

NARRATIVE: CASE EVENT DATE: 20250101
